FAERS Safety Report 7880672-X (Version None)
Quarter: 2011Q4

REPORT INFORMATION
  Report Type: 
  Country: None (occurrence: None)
  Receive Date: 20111101
  Receipt Date: 20111019
  Transmission Date: 20120403
  Serious: Yes (Life-Threatening, Hospitalization)
  Sender: FDA-Public Use
  Company Number: JP-PFIZER INC-2011086770

PATIENT
  Age: 64 Year
  Sex: Male
  Weight: 61 kg

DRUGS (24)
  1. SUNITINIB MALATE [Suspect]
     Dosage: 37.5 MG, 1X/DAY
     Dates: start: 20090228, end: 20090311
  2. SUNITINIB MALATE [Suspect]
     Dosage: 37.5 MG, 1X/DAY
     Route: 048
     Dates: start: 20110106, end: 20110115
  3. CANDESARTAN CILEXETIL [Concomitant]
     Dosage: 4 MG, 1X/DAY
     Route: 048
     Dates: start: 20110324, end: 20110419
  4. ALLOID [Concomitant]
     Dosage: 30 ML, 3X/DAY
     Route: 048
     Dates: end: 20110419
  5. SUNITINIB MALATE [Suspect]
     Dosage: 25 MG, 1X/DAY
     Route: 048
     Dates: start: 20090425, end: 20090501
  6. SUNITINIB MALATE [Suspect]
     Dosage: 37.5 MG, 1X/DAY
     Route: 048
     Dates: start: 20091017, end: 20091023
  7. SUNITINIB MALATE [Suspect]
     Dosage: 37.5 MG, 1X/DAY
     Route: 048
     Dates: start: 20100107, end: 20100113
  8. SUNITINIB MALATE [Suspect]
     Dosage: 37.5 MG, 1X/DAY
     Route: 048
     Dates: start: 20091128, end: 20091204
  9. SUNITINIB MALATE [Suspect]
     Dosage: 25 MG, 1X/DAY
     Route: 048
     Dates: start: 20091205, end: 20091225
  10. SUNITINIB MALATE [Suspect]
     Dosage: 25 MG, 1X/DAY
     Route: 048
     Dates: start: 20110301, end: 20110318
  11. SUNITINIB MALATE [Suspect]
     Dosage: 37.5 MG, 1X/DAY
     Route: 048
     Dates: start: 20090411, end: 20090424
  12. SUNITINIB MALATE [Suspect]
     Dosage: 25 MG, 1X/DAY
     Dates: start: 20090718, end: 20090807
  13. SUNITINIB MALATE [Suspect]
     Dosage: 25 MG, 1X/DAY
     Route: 048
     Dates: start: 20090829, end: 20090925
  14. SUNITINIB MALATE [Suspect]
     Dosage: 25 MG, 1X/DAY
     Route: 048
     Dates: start: 20091024, end: 20091111
  15. SUNITINIB MALATE [Suspect]
     Indication: RENAL CELL CARCINOMA
     Dosage: 50 MG, 1X/DAY
     Route: 048
     Dates: start: 20090115, end: 20090128
  16. SUNITINIB MALATE [Suspect]
     Dosage: 25 MG, 1X/DAY
     Dates: start: 20090312, end: 20090318
  17. SUNITINIB MALATE [Suspect]
     Dosage: 25 MG, 1X/DAY
     Dates: start: 20090620, end: 20090703
  18. SUNITINIB MALATE [Suspect]
     Dosage: 37.5 MG, 1X/DAY
     Route: 048
     Dates: start: 20110403, end: 20110419
  19. LAC B [Concomitant]
     Dosage: 1 G, 3X/DAY
     Route: 048
     Dates: end: 20110419
  20. SUNITINIB MALATE [Suspect]
     Dosage: 25 MG, 1X/DAY
     Dates: start: 20090523, end: 20090605
  21. SUNITINIB MALATE [Suspect]
     Dosage: 25 MG, 1X/DAY
     Route: 048
     Dates: start: 20100114
  22. SUNITINIB MALATE [Suspect]
     Dosage: 25 MG, 1X/DAY
     Route: 048
     Dates: start: 20110116, end: 20110202
  23. SUNITINIB MALATE [Suspect]
     Dosage: 37.5 MG, 1X/DAY
     Route: 048
     Dates: start: 20110219, end: 20110228
  24. LOPERAMIDE HCL [Concomitant]
     Dosage: 1 MG, 1X/DAY
     Route: 048
     Dates: end: 20110419

REACTIONS (2)
  - BLOOD PRESSURE INCREASED [None]
  - AORTIC DISSECTION [None]
